FAERS Safety Report 7454063-X (Version None)
Quarter: 2011Q2

REPORT INFORMATION
  Report Type: 
  Country: None (occurrence: None)
  Receive Date: 20110502
  Receipt Date: 20110426
  Transmission Date: 20111010
  Serious: No
  Sender: FDA-Public Use
  Company Number: US-RB-025242-11

PATIENT
  Age: 58 Year
  Sex: Female

DRUGS (3)
  1. TRAZODONE [Concomitant]
     Indication: INSOMNIA
     Dosage: DOSING INFORMATION UNKNOWN
  2. LEXAPRO [Concomitant]
     Indication: DEPRESSION
     Dosage: DOSING INFORMATION UNKNOWN
  3. SUBOXONE [Suspect]
     Indication: DRUG DEPENDENCE
     Dosage: SUBLINGUAL FILM
     Route: 060
     Dates: start: 20110301

REACTIONS (2)
  - SUBSTANCE ABUSE [None]
  - OFF LABEL USE [None]
